FAERS Safety Report 23116554 (Version 2)
Quarter: 2023Q4

REPORT INFORMATION
  Report Type: Spontaneous
  Country: US (occurrence: US)
  Receive Date: 20231027
  Receipt Date: 20231030
  Transmission Date: 20240110
  Serious: No
  Sender: FDA-Public Use
  Company Number: US-002147023-NVSC2023US230647

PATIENT
  Sex: Female

DRUGS (4)
  1. XIIDRA [Suspect]
     Active Substance: LIFITEGRAST
     Indication: Product used for unknown indication
     Dosage: 50 MILLIGRAM PER MILLILITRE (5%)
     Route: 047
  2. XIIDRA [Suspect]
     Active Substance: LIFITEGRAST
     Dosage: 0.02 ML, BID
     Route: 047
  3. FISH OIL [Concomitant]
     Active Substance: FISH OIL
     Indication: Product used for unknown indication
     Dosage: UNK
     Route: 065
  4. MEI BO [Concomitant]
     Indication: Product used for unknown indication
     Route: 065

REACTIONS (2)
  - Incorrect dose administered [Unknown]
  - Inappropriate schedule of product administration [Unknown]
